FAERS Safety Report 5317632-9 (Version None)
Quarter: 2007Q2

REPORT INFORMATION
  Report Type: 
  Country: None (occurrence: None)
  Receive Date: 20070507
  Receipt Date: 20070426
  Transmission Date: 20071010
  Serious: Yes (Hospitalization, Other)
  Sender: FDA-Public Use
  Company Number: GB-JNJFOC-20061006270

PATIENT
  Age: 78 Year
  Sex: Female

DRUGS (12)
  1. FENTANYL CITRATE [Suspect]
     Indication: ANALGESIC EFFECT
     Route: 065
  2. MORPHINE [Interacting]
     Indication: ANALGESIC EFFECT
     Route: 065
  3. ATENOLOL [Concomitant]
     Indication: HYPERTENSION
     Route: 065
  4. CYCLIZINE [Concomitant]
     Indication: DRUG USE FOR UNKNOWN INDICATION
     Route: 065
  5. MIDAZOLAM HCL [Concomitant]
     Indication: ANAESTHESIA
     Route: 065
  6. PROPOFOL [Concomitant]
     Indication: ANAESTHESIA
     Route: 065
  7. ROCURONIUM BROMIDE [Concomitant]
     Indication: INTUBATION
     Route: 065
  8. SIMVASTATIN [Concomitant]
     Indication: DRUG USE FOR UNKNOWN INDICATION
     Route: 065
  9. SEVOFLURANE [Concomitant]
     Indication: ANAESTHESIA
     Route: 055
  10. GELATIN [Concomitant]
  11. HARTMANNS [Concomitant]
  12. TRAMADOL HCL [Concomitant]
     Indication: ANAESTHESIA

REACTIONS (4)
  - DELAYED RECOVERY FROM ANAESTHESIA [None]
  - DRUG INTERACTION [None]
  - MIOSIS [None]
  - RESPIRATORY DEPRESSION [None]
